FAERS Safety Report 16362028 (Version 3)
Quarter: 2022Q2

REPORT INFORMATION
  Report Type: Spontaneous
  Country: US (occurrence: US)
  Receive Date: 20190528
  Receipt Date: 20220427
  Transmission Date: 20220720
  Serious: No
  Sender: FDA-Public Use
  Company Number: US-PFIZER INC-2019224532

PATIENT
  Age: 60 Year
  Sex: Male
  Weight: 77.11 kg

DRUGS (2)
  1. RAPAMUNE [Suspect]
     Active Substance: SIROLIMUS
     Indication: Transplant
     Dosage: FOUR 1 MG TABLETS
  2. RAPAMUNE [Suspect]
     Active Substance: SIROLIMUS
     Dosage: 5 MG, DAILY
     Route: 048

REACTIONS (2)
  - Blood test abnormal [Unknown]
  - Incorrect dose administered [Unknown]
